FAERS Safety Report 13225004 (Version 3)
Quarter: 2017Q1

REPORT INFORMATION
  Report Type: Report from Study
  Country: US (occurrence: US)
  Receive Date: 20170213
  Receipt Date: 20170306
  Transmission Date: 20170428
  Serious: Yes (Death, Hospitalization, Other)
  Sender: FDA-Public Use
  Company Number: US-009507513-1612USA010711

PATIENT
  Age: 86 Year
  Sex: Female

DRUGS (1)
  1. KEYTRUDA [Suspect]
     Active Substance: PEMBROLIZUMAB
     Indication: PANCREATIC CARCINOMA
     Dosage: 200 MG, Q3W
     Route: 042
     Dates: start: 20160614, end: 20160707

REACTIONS (6)
  - Deep vein thrombosis [Not Recovered/Not Resolved]
  - Malignant neoplasm progression [Fatal]
  - Product use issue [Unknown]
  - Haemorrhage [Not Recovered/Not Resolved]
  - Adverse event [Unknown]
  - Clostridial sepsis [Not Recovered/Not Resolved]

NARRATIVE: CASE EVENT DATE: 20160716
